FAERS Safety Report 21473395 (Version 2)
Quarter: 2022Q4

REPORT INFORMATION
  Report Type: Spontaneous
  Country: FR (occurrence: FR)
  Receive Date: 20221018
  Receipt Date: 20221114
  Transmission Date: 20230113
  Serious: Yes (Death, Life-Threatening)
  Sender: FDA-Public Use
  Company Number: None

PATIENT
  Age: 57 Year
  Sex: Female
  Weight: 83 kg

DRUGS (7)
  1. CISATRACURIUM BESYLATE [Suspect]
     Active Substance: CISATRACURIUM BESYLATE
     Indication: Neuromuscular blocking therapy
     Dosage: 2.7 MG, FREQUENCY: 1 HOUR
     Route: 042
     Dates: start: 20220929
  2. MIDAZOLAM [Suspect]
     Active Substance: MIDAZOLAM
     Indication: Sedative therapy
     Dosage: 4 MG/G, FREQUENCY: 1 HOUR
     Route: 042
     Dates: start: 20220929
  3. SUFENTANIL [Suspect]
     Active Substance: SUFENTANIL
     Indication: Sedative therapy
     Dosage: 10 UG, FREQUENCY: 1 HOUR
     Route: 042
     Dates: start: 20220929
  4. PROPOFOL [Suspect]
     Active Substance: PROPOFOL
     Indication: Sedative therapy
     Dosage: 250 MG, FREQUENCY: 1 HOUR
     Route: 042
     Dates: start: 20220929
  5. PANTOPRAZOLE SODIUM [Concomitant]
     Active Substance: PANTOPRAZOLE SODIUM
     Dosage: UNK
  6. SOLU-MEDROL [Concomitant]
     Active Substance: METHYLPREDNISOLONE SODIUM SUCCINATE
     Dosage: UNK
  7. CEFAZOLINE HOSPIRA [Concomitant]
     Dosage: UNK

REACTIONS (3)
  - Cardiac arrest [Recovered/Resolved]
  - Torsade de pointes [Recovered/Resolved]
  - Cardio-respiratory arrest [Fatal]

NARRATIVE: CASE EVENT DATE: 20221004
